FAERS Safety Report 3290831 (Version 1)
Quarter: 2020Q3

REPORT INFORMATION
  Report Type: Spontaneous
  Country: EG (occurrence: None)
  Receive Date: 19990616
  Receipt Date: 19990616
  Transmission Date: 20201105
  Serious: Yes (Death)
  Sender: FDA-Public Use
  Company Number: 9923944

PATIENT
  Age: 60 Year
  Sex: Male

DRUGS (2)
  1. ALATROFLOXACIN MESYLATE. [Suspect]
     Active Substance: ALATROFLOXACIN MESYLATE
     Indication: ANTIBIOTIC PROPHYLAXIS
     Dosage: 300.00 MG TOTAL:DAILY:INTRAVENOUS
     Route: 042
     Dates: start: 19990522, end: 19990523
  2. ALATROFLOXACIN MESYLATE. [Suspect]
     Active Substance: ALATROFLOXACIN MESYLATE
     Indication: SURGERY
     Dosage: 300.00 MG TOTAL:DAILY:INTRAVENOUS
     Route: 042
     Dates: start: 19990522, end: 19990523

REACTIONS (1)
  - Sudden death [None]

NARRATIVE: CASE EVENT DATE: 19990523
